FAERS Safety Report 11211686 (Version 1)
Quarter: 2015Q2

REPORT INFORMATION
  Report Type: Spontaneous
  Country: JP (occurrence: JP)
  Receive Date: 20150623
  Receipt Date: 20150623
  Transmission Date: 20150821
  Serious: Yes (Death)
  Sender: FDA-Public Use
  Company Number: JP-ROCHE-1597871

PATIENT
  Sex: Male
  Weight: 53 kg

DRUGS (8)
  1. MAINTATE [Concomitant]
     Active Substance: BISOPROLOL FUMARATE
     Route: 048
  2. BAYASPIRIN [Concomitant]
     Active Substance: ASPIRIN
     Route: 048
  3. ALDOMET [Concomitant]
     Active Substance: METHYLDOPA
     Dosage: NON-DIALYSIS DAY
     Route: 048
  4. CILOSTAZOL. [Concomitant]
     Active Substance: CILOSTAZOL
     Dosage: BRAND NAME-PLETAAL OD
     Route: 048
  5. MIRCERA [Suspect]
     Active Substance: METHOXY POLYETHYLENE GLYCOL-EPOETIN BETA
     Indication: NEPHROGENIC ANAEMIA
     Dosage: MOST RECENT DOSE RECEIVED ON 02/OCT/2012
     Route: 042
     Dates: start: 20120703
  6. ZYLORIC [Concomitant]
     Active Substance: ALLOPURINOL
     Dosage: AFTER THE SOIL DIALYSIS ENDS AT TUESDAY AND THURSDAY
     Route: 048
  7. BLOPRESS [Concomitant]
     Active Substance: CANDESARTAN CILEXETIL
     Route: 048
  8. RENAGEL [Concomitant]
     Active Substance: SEVELAMER HYDROCHLORIDE
     Route: 048

REACTIONS (1)
  - Death [Fatal]
